FAERS Safety Report 25734523 (Version 1)
Quarter: 2025Q3

REPORT INFORMATION
  Report Type: Spontaneous
  Country: RU (occurrence: RU)
  Receive Date: 20250828
  Receipt Date: 20250828
  Transmission Date: 20251020
  Serious: Yes (Hospitalization, Other)
  Sender: RANBAXY
  Company Number: RU-SUN PHARMACEUTICAL INDUSTRIES LTD-2025R1-524274

PATIENT
  Age: 17 Year
  Sex: Male

DRUGS (1)
  1. MESALAMINE [Suspect]
     Active Substance: MESALAMINE
     Indication: Crohn^s disease
     Dosage: 3.0 GRAM, QD
     Route: 065

REACTIONS (3)
  - Therapeutic response decreased [Unknown]
  - Pain in extremity [Recovering/Resolving]
  - Posture abnormal [Recovering/Resolving]
